APPROVED DRUG PRODUCT: VANCOCIN HYDROCHLORIDE
Active Ingredient: VANCOMYCIN HYDROCHLORIDE
Strength: EQ 250MG BASE/5ML
Dosage Form/Route: FOR SOLUTION;ORAL
Application: A061667 | Product #002
Applicant: ANI PHARMACEUTICALS INC
Approved: Jul 13, 1983 | RLD: No | RS: Yes | Type: RX